FAERS Safety Report 6649589-2 (Version None)
Quarter: 2010Q1

REPORT INFORMATION
  Report Type: 
  Country: None (occurrence: None)
  Receive Date: 20100324
  Receipt Date: 20100324
  Transmission Date: 20100710
  Serious: Yes (Life-Threatening, Hospitalization)
  Sender: FDA-Public Use
  Company Number: None

PATIENT
  Age: 70 Year
  Sex: Male
  Weight: 97.5234 kg

DRUGS (1)
  1. METFORMIN ER 500 MG SUNP [Suspect]
     Indication: TYPE 2 DIABETES MELLITUS
     Dosage: 500 MG TWICE A DAY PO
     Route: 048
     Dates: start: 20100226, end: 20100323

REACTIONS (4)
  - CHOKING [None]
  - FOREIGN BODY [None]
  - PAIN [None]
  - PRODUCTIVE COUGH [None]
